FAERS Safety Report 14566229 (Version 3)
Quarter: 2018Q2

REPORT INFORMATION
  Report Type: Spontaneous
  Country: US (occurrence: US)
  Receive Date: 20180223
  Receipt Date: 20180409
  Transmission Date: 20180711
  Serious: Yes (Hospitalization, Other)
  Sender: FDA-Public Use
  Company Number: US-PFIZER INC-2018073377

PATIENT
  Age: 6 Month
  Sex: Male

DRUGS (2)
  1. MORPHINE SULFATE. [Suspect]
     Active Substance: MORPHINE SULFATE
     Indication: ANAESTHESIA PROCEDURE
     Dosage: 20 MG, UNK (SLOWLY)
     Route: 042
     Dates: start: 20180214, end: 20180214
  2. DEXDOMITOR [Concomitant]
     Dosage: UNK
     Dates: start: 20180214, end: 20180214

REACTIONS (5)
  - Swelling [Recovered/Resolved]
  - Erythema [Recovered/Resolved]
  - Anaphylactic reaction [Recovered/Resolved]
  - Drug administered to patient of inappropriate age [Unknown]
  - Urticaria [Recovered/Resolved]

NARRATIVE: CASE EVENT DATE: 20180214
